FAERS Safety Report 20327090 (Version 1)
Quarter: 2022Q1

REPORT INFORMATION
  Report Type: Spontaneous
  Country: US (occurrence: US)
  Receive Date: 20220112
  Receipt Date: 20220112
  Transmission Date: 20220423
  Serious: No
  Sender: FDA-Public Use
  Company Number: US-JNJFOC-20220107228

PATIENT

DRUGS (1)
  1. ZYRTEC [Suspect]
     Active Substance: CETIRIZINE HYDROCHLORIDE
     Indication: Hypersensitivity
     Dosage: 1 TABLET THEN CHANGE TO HALF A TABLET ONCE A DAY
     Route: 065
     Dates: start: 20211228, end: 20220103

REACTIONS (4)
  - Dyspnoea [Unknown]
  - Hypertension [Unknown]
  - Abdominal pain upper [Unknown]
  - Incorrect dose administered [Unknown]
